FAERS Safety Report 9243584 (Version 2)
Quarter: 2013Q2

REPORT INFORMATION
  Report Type: Spontaneous
  Country: TN (occurrence: TN)
  Receive Date: 20130422
  Receipt Date: 20130430
  Transmission Date: 20140414
  Serious: Yes (Death, Hospitalization)
  Sender: FDA-Public Use
  Company Number: TN-BIOGENIDEC-2013BI029829

PATIENT
  Sex: Female

DRUGS (1)
  1. TYSABRI [Suspect]
     Indication: MULTIPLE SCLEROSIS
     Dates: start: 20091121, end: 201105

REACTIONS (1)
  - Multiple sclerosis relapse [Fatal]
